FAERS Safety Report 16783448 (Version 1)
Quarter: 2019Q3

REPORT INFORMATION
  Report Type: Spontaneous
  Country: NL (occurrence: NL)
  Receive Date: 20190907
  Receipt Date: 20190907
  Transmission Date: 20191005
  Serious: Yes (Hospitalization)
  Sender: FDA-Public Use
  Company Number: NL-TEVA-2019-NL-1103620

PATIENT
  Age: 82 Year
  Sex: Male
  Weight: 63 kg

DRUGS (2)
  1. ALPRAZOLAM 0,25 MG [Concomitant]
     Dosage: 1/2 TAB DD
     Dates: start: 2017
  2. TAMSULOSINE / CAPSULE MET GEREGULEERDE AFGIFTE, 0,4 MG (MILLIGRAM) [Suspect]
     Active Substance: TAMSULOSIN HYDROCHLORIDE
     Indication: BENIGN PROSTATIC HYPERPLASIA
     Dosage: 1X PER DAY 1 PIECE
     Dates: start: 20180706, end: 20180925

REACTIONS (1)
  - Immune thrombocytopenic purpura [Recovered/Resolved]

NARRATIVE: CASE EVENT DATE: 20180925
